FAERS Safety Report 6613562-0 (Version None)
Quarter: 2010Q1

REPORT INFORMATION
  Report Type: 
  Country: None (occurrence: None)
  Receive Date: 20100304
  Receipt Date: 20100222
  Transmission Date: 20100710
  Serious: Yes (Other)
  Sender: FDA-Public Use
  Company Number: GB-ROCHE-588422

PATIENT
  Sex: Female

DRUGS (4)
  1. ISOTRETINOIN [Suspect]
     Indication: ACNE
     Route: 048
     Dates: start: 20080422, end: 20080715
  2. CILEST [Concomitant]
     Route: 048
  3. LYMECYCLINE [Concomitant]
     Dates: start: 20080124, end: 20080422
  4. RETIN-A [Concomitant]
     Dates: start: 20080124, end: 20080422

REACTIONS (2)
  - NO ADVERSE EVENT [None]
  - PREGNANCY [None]
